FAERS Safety Report 22200401 (Version 2)
Quarter: 2023Q2

REPORT INFORMATION
  Report Type: Spontaneous
  Country: FR (occurrence: FR)
  Receive Date: 20230412
  Receipt Date: 20230627
  Transmission Date: 20230721
  Serious: Yes (Hospitalization, Other)
  Sender: FDA-Public Use
  Company Number: FR-AFSSAPS-MA2023001127

PATIENT
  Age: 64 Year
  Sex: Male

DRUGS (6)
  1. TOPIRAMATE [Interacting]
     Active Substance: TOPIRAMATE
     Indication: Post-traumatic epilepsy
     Dosage: 800 MILLIGRAM, ONCE A DAY
     Route: 048
  2. VALPROATE SODIUM [Suspect]
     Active Substance: VALPROATE SODIUM
     Indication: Post-traumatic epilepsy
     Dosage: 2000 MILLIGRAM, ONCE A DAY
     Route: 048
  3. TERALITHE [Interacting]
     Active Substance: LITHIUM CARBONATE
     Indication: Schizophrenia
     Dosage: 1 DOSAGE FORM
     Route: 048
     Dates: end: 20230228
  4. AMISULPRIDE [Concomitant]
     Active Substance: AMISULPRIDE
     Indication: Product used for unknown indication
     Dosage: UNK
     Route: 065
  5. DIAZEPAM [Concomitant]
     Active Substance: DIAZEPAM
     Indication: Product used for unknown indication
     Dosage: UNK
     Route: 065
  6. CYAMEMAZINE [Concomitant]
     Active Substance: CYAMEMAZINE
     Indication: Product used for unknown indication
     Dosage: UNK
     Route: 065

REACTIONS (6)
  - Antipsychotic drug level increased [Recovered/Resolved]
  - Apraxia [Recovered/Resolved]
  - Dehydration [Recovered/Resolved]
  - Dysarthria [Recovered/Resolved]
  - Hypothyroidism [Unknown]
  - Somnolence [Recovered/Resolved]

NARRATIVE: CASE EVENT DATE: 20230225
